FAERS Safety Report 4266303-9 (Version None)
Quarter: 2004Q1

REPORT INFORMATION
  Report Type: 
  Country: None (occurrence: None)
  Receive Date: 20040106
  Receipt Date: 20031223
  Transmission Date: 20041129
  Serious: Yes (Hospitalization)
  Sender: FDA-Public Use
  Company Number: 2003126794

PATIENT
  Age: 75 Year
  Sex: Male
  Weight: 75.8 kg

DRUGS (11)
  1. DOXAZOSIN MESLYLATE [Suspect]
     Indication: ILL-DEFINED DISORDER
     Dosage: ORAL
     Route: 048
  2. BLINDED THERAPY [Concomitant]
  3. ATORVASTATIN [Concomitant]
  4. ACETYLSALICYLIC ACID SRT [Concomitant]
  5. LEVOBUNOLOL HYDROCHLORIDE (LEVOBUNOLOL HYDROCHLORIDE) [Concomitant]
  6. DIPIVEFRINE (DIPIVEFRINE) [Concomitant]
  7. FERROUS SULFATE TAB [Concomitant]
  8. SALBUTAMOL (SALBUTAMOL) [Concomitant]
  9. TELMISARTAN (TELMISARTAN) [Concomitant]
  10. CYANOCOBALAMIN (CYANOCOBALAMIN) [Concomitant]
  11. PARACETAMOL (PARACETAMOL) [Concomitant]

REACTIONS (2)
  - CIRCULATORY COLLAPSE [None]
  - ORTHOSTATIC HYPOTENSION [None]
